FAERS Safety Report 9017398 (Version 2)
Quarter: 2013Q1

REPORT INFORMATION
  Report Type: Other
  Country: GB (occurrence: GB)
  Receive Date: 20130117
  Receipt Date: 20130131
  Transmission Date: 20140127
  Serious: Yes (Other)
  Sender: FDA-Public Use
  Company Number: GB-WATSON-2013-00429

PATIENT
  Sex: Female

DRUGS (3)
  1. PREDNISOLONE (UNKNOWN) [Suspect]
     Indication: TEMPORAL ARTERITIS
     Dosage: UNK
     Route: 065
  2. PREDNISOLONE (UNKNOWN) [Suspect]
     Indication: POLYMYALGIA RHEUMATICA
     Dosage: UNK
     Route: 065
  3. LISINOPRIL [Suspect]
     Indication: PRODUCT USED FOR UNKNOWN INDICATION
     Dosage: UNK
     Route: 065

REACTIONS (10)
  - Renal failure chronic [Unknown]
  - Drug interaction [Unknown]
  - Kidney infection [Recovered/Resolved]
  - Blood potassium increased [Unknown]
  - Blood creatine increased [Unknown]
  - Red blood cell sedimentation rate increased [Unknown]
  - Malaise [Unknown]
  - Pollakiuria [Unknown]
  - Chromaturia [Unknown]
  - Pyuria [Unknown]
